FAERS Safety Report 12955044 (Version 2)
Quarter: 2019Q2

REPORT INFORMATION
  Report Type: Report from Study
  Country: US (occurrence: US)
  Receive Date: 20161118
  Receipt Date: 20190412
  Transmission Date: 20190711
  Serious: Yes (Death, Hospitalization)
  Sender: FDA-Public Use
  Company Number: US-ACTELION-A-US2016-145728

PATIENT
  Age: 96 Year
  Sex: Female
  Weight: 73.47 kg

DRUGS (2)
  1. ELIQUIS [Concomitant]
     Active Substance: APIXABAN
  2. TRACLEER [Suspect]
     Active Substance: BOSENTAN
     Indication: PULMONARY ARTERIAL HYPERTENSION
     Dosage: 125 MG, BID
     Route: 048
     Dates: start: 20110103

REACTIONS (3)
  - Staphylococcal infection [Unknown]
  - Transient ischaemic attack [Unknown]
  - Death [Fatal]

NARRATIVE: CASE EVENT DATE: 20161110
